FAERS Safety Report 20880245 (Version 2)
Quarter: 2022Q2

REPORT INFORMATION
  Report Type: Spontaneous
  Country: IT (occurrence: IT)
  Receive Date: 20220526
  Receipt Date: 20220611
  Transmission Date: 20220721
  Serious: Yes (Hospitalization, Other)
  Sender: FDA-Public Use
  Company Number: IT-TEVA-2022-IT-2039324

PATIENT
  Age: 36 Year
  Sex: Female

DRUGS (5)
  1. CLOZAPINE [Suspect]
     Active Substance: CLOZAPINE
     Indication: Schizophrenia
     Dosage: 225 MILLIGRAM DAILY;
     Route: 065
  2. RISPERIDONE [Suspect]
     Active Substance: RISPERIDONE
     Indication: Schizophrenia
     Route: 065
  3. PALIPERIDONE [Suspect]
     Active Substance: PALIPERIDONE
     Indication: Schizophrenia
     Dosage: 12 MG
     Route: 065
  4. LURASIDONE [Suspect]
     Active Substance: LURASIDONE
     Indication: Schizophrenia
     Dosage: 148 MG
     Route: 065
  5. HALOPERIDOL [Suspect]
     Active Substance: HALOPERIDOL
     Indication: Schizophrenia
     Route: 065

REACTIONS (7)
  - Sedation [Unknown]
  - Salivary hypersecretion [Unknown]
  - Hypotension [Unknown]
  - Pleural effusion [Recovered/Resolved]
  - Serositis [Recovered/Resolved]
  - Tachycardia [Unknown]
  - Drug ineffective [Unknown]
